FAERS Safety Report 18438308 (Version 1)
Quarter: 2020Q4

REPORT INFORMATION
  Report Type: Spontaneous
  Country: CN (occurrence: CN)
  Receive Date: 20201028
  Receipt Date: 20201028
  Transmission Date: 20210114
  Serious: Yes (Other)
  Sender: FDA-Public Use
  Company Number: CN-ASTRAZENECA-2020SF36394

PATIENT
  Age: 66 Year
  Sex: Female
  Weight: 50 kg

DRUGS (4)
  1. MOSAPRIDE [Concomitant]
     Active Substance: MOSAPRIDE
     Indication: DIABETES MELLITUS
     Route: 065
  2. PANTOPRAZOLE SODIUM. [Concomitant]
     Active Substance: PANTOPRAZOLE SODIUM
     Indication: DIABETES MELLITUS
     Dosage: TWICE A DAY, ONE PILL AT A TIME
     Route: 065
  3. IRESSA [Suspect]
     Active Substance: GEFITINIB
     Indication: NON-SMALL CELL LUNG CANCER
     Route: 048
  4. NOVOLIN NOS [Concomitant]
     Active Substance: INSULIN HUMAN
     Indication: DIABETES MELLITUS
     Dosage: TWICE A DAY, INJECT 20 UNIT IN THE MORNING, INJECT 10 UNIT IN THE EVENING
     Route: 065

REACTIONS (4)
  - Constipation [Not Recovered/Not Resolved]
  - Drug resistance [Unknown]
  - Pruritus [Recovered/Resolved]
  - Acne [Recovered/Resolved]
